FAERS Safety Report 18714250 (Version 1)
Quarter: 2021Q1

REPORT INFORMATION
  Report Type: Spontaneous
  Country: US (occurrence: US)
  Receive Date: 20210107
  Receipt Date: 20210107
  Transmission Date: 20210419
  Serious: No
  Sender: FDA-Public Use
  Company Number: US-GALDERMA-US2020045469

PATIENT
  Sex: Female

DRUGS (5)
  1. METROGEL [Suspect]
     Active Substance: METRONIDAZOLE
     Indication: ROSACEA
     Dosage: 1%
     Route: 061
  2. METROLOTION [Suspect]
     Active Substance: METRONIDAZOLE
     Indication: ROSACEA
     Dosage: 0.75%
     Route: 061
  3. METROLOTION [Suspect]
     Active Substance: METRONIDAZOLE
     Dosage: 0.75%
     Route: 061
  4. METROGEL [Suspect]
     Active Substance: METRONIDAZOLE
     Dosage: 1%
     Route: 061
  5. METROCREAM [Suspect]
     Active Substance: METRONIDAZOLE
     Indication: ROSACEA
     Dosage: 0.75%
     Route: 061

REACTIONS (4)
  - Skin irritation [Recovered/Resolved]
  - Discomfort [Unknown]
  - Drug ineffective [Not Recovered/Not Resolved]
  - Rosacea [Unknown]
